FAERS Safety Report 7182965-0 (Version None)
Quarter: 2010Q4

REPORT INFORMATION
  Report Type: 
  Country: None (occurrence: None)
  Receive Date: 20101222
  Receipt Date: 20101213
  Transmission Date: 20110411
  Serious: Yes (Death)
  Sender: FDA-Public Use
  Company Number: GB-JNJFOC-20101204776

PATIENT
  Age: 43 Year
  Sex: Male
  Weight: 30 kg

DRUGS (2)
  1. PARACETAMOL [Suspect]
     Route: 048
  2. PARACETAMOL [Suspect]
     Indication: CROHN'S DISEASE
     Route: 048

REACTIONS (4)
  - ACUTE HEPATIC FAILURE [None]
  - LACTIC ACIDOSIS [None]
  - MULTI-ORGAN FAILURE [None]
  - TACHYPNOEA [None]
